FAERS Safety Report 8214629-6 (Version None)
Quarter: 2012Q1

REPORT INFORMATION
  Report Type: 
  Country: None (occurrence: None)
  Receive Date: 20120229
  Receipt Date: 20111219
  Transmission Date: 20120608
  Serious: Yes (Other)
  Sender: FDA-Public Use
  Company Number: US-JNJFOC-20111203650

PATIENT
  Age: 75 Year
  Sex: Female

DRUGS (3)
  1. METFORMIN (METFORMIN) UNSPECIFIED [Concomitant]
  2. CHOLESTEROL MEDICATION NOS (CHOLESTEROL- AND TRIGLYCERINE REDUCERS) UN [Concomitant]
  3. MOTRIN IB [Suspect]
     Indication: HEADACHE
     Dosage: 400 MG, 1 IN 1 TOTAL, ORAL
     Route: 048
     Dates: start: 19910101, end: 19910101

REACTIONS (3)
  - URTICARIA [None]
  - THROAT TIGHTNESS [None]
  - SWELLING FACE [None]
